FAERS Safety Report 8598422-0 (Version None)
Quarter: 2012Q3

REPORT INFORMATION
  Report Type: 
  Country: None (occurrence: None)
  Receive Date: 20120816
  Receipt Date: 20120813
  Transmission Date: 20120928
  Serious: Yes (Hospitalization)
  Sender: FDA-Public Use
  Company Number: US-ROCHE-1055225

PATIENT
  Sex: Female
  Weight: 71.732 kg

DRUGS (8)
  1. RIBAVIRIN [Suspect]
     Indication: HEPATITIS C
     Dosage: DIVIDED DOSES
     Route: 048
     Dates: start: 20120316
  2. RIBAVIRIN [Suspect]
     Dosage: DIVIDED DOSE
  3. RIBAVIRIN [Suspect]
     Route: 048
  4. ZOFRAN [Concomitant]
     Indication: NAUSEA
     Route: 048
     Dates: start: 20120326
  5. PEGASYS [Suspect]
     Indication: HEPATITIS C
     Route: 058
     Dates: start: 20120316
  6. AMLODIPINE [Concomitant]
     Route: 048
  7. INCIVEK [Suspect]
     Indication: HEPATITIS C
     Dates: start: 20120316, end: 20120601
  8. PREDNISONE TAB [Concomitant]

REACTIONS (10)
  - DYSGEUSIA [None]
  - PRURITUS [None]
  - DYSPEPSIA [None]
  - CHROMATURIA [None]
  - ANAEMIA [None]
  - RASH GENERALISED [None]
  - RENAL HAEMORRHAGE [None]
  - ASTHENIA [None]
  - TRANSFUSION [None]
  - NAUSEA [None]
